FAERS Safety Report 4316286-8 (Version None)
Quarter: 2004Q1

REPORT INFORMATION
  Report Type: 
  Country: None (occurrence: None)
  Receive Date: 20040311
  Receipt Date: 20040211
  Transmission Date: 20041129
  Serious: Yes (Death, Hospitalization)
  Sender: FDA-Public Use
  Company Number: F01200400267

PATIENT
  Age: 67 Year
  Sex: Male

DRUGS (4)
  1. PLAVIX [Suspect]
     Indication: PERIPHERAL OCCLUSIVE DISEASE
     Dosage: 75 MG QD, ORAL
     Route: 048
     Dates: start: 20030204
  2. DIURETICS [Concomitant]
  3. IECAS (ACE-INHIBITORS) [Concomitant]
  4. CALCIUM INHIBITORS [Concomitant]

REACTIONS (3)
  - AMPUTATION [None]
  - MULTI-ORGAN FAILURE [None]
  - RENAL FAILURE [None]
